FAERS Safety Report 5952422-5 (Version None)
Quarter: 2008Q4

REPORT INFORMATION
  Report Type: 
  Country: None (occurrence: None)
  Receive Date: 20081113
  Receipt Date: 20081103
  Transmission Date: 20090506
  Serious: Yes (Hospitalization)
  Sender: FDA-Public Use
  Company Number: US-ABBOTT-08P-163-0484072-00

PATIENT
  Sex: Female
  Weight: 61.29 kg

DRUGS (8)
  1. HUMIRA [Suspect]
     Indication: CROHN'S DISEASE
     Dosage: 160 MG, ONCE
     Route: 058
     Dates: start: 20081006, end: 20081006
  2. HUMIRA [Suspect]
     Dosage: 80 MG, ONCE
     Route: 058
     Dates: start: 20081020, end: 20081020
  3. HUMIRA [Suspect]
     Route: 058
     Dates: start: 20081103
  4. HUMIRA [Suspect]
     Route: 058
     Dates: start: 20081103
  5. BIRTH CONTROL PILLS [Concomitant]
     Indication: CONTRACEPTION
  6. LISINOPRIL [Concomitant]
     Indication: HYPERTENSION
  7. CALCIUM [Concomitant]
     Indication: DRUG USE FOR UNKNOWN INDICATION
  8. FOLIC ACID [Concomitant]
     Indication: DRUG USE FOR UNKNOWN INDICATION

REACTIONS (10)
  - BLOOD CALCIUM DECREASED [None]
  - BLOOD ELECTROLYTES ABNORMAL [None]
  - BLOOD MAGNESIUM DECREASED [None]
  - BLOOD POTASSIUM DECREASED [None]
  - DYSKINESIA [None]
  - HYPOAESTHESIA [None]
  - MUSCLE CONTRACTIONS INVOLUNTARY [None]
  - MUSCLE SPASMS [None]
  - PARAESTHESIA [None]
  - SENSORY DISTURBANCE [None]
